FAERS Safety Report 10192051 (Version 2)
Quarter: 2014Q2

REPORT INFORMATION
  Report Type: Spontaneous
  Country: US (occurrence: US)
  Receive Date: 20140523
  Receipt Date: 20140523
  Transmission Date: 20141212
  Serious: No
  Sender: FDA-Public Use
  Company Number: US-PFIZER INC-2014127792

PATIENT
  Sex: Male

DRUGS (1)
  1. NEURONTIN [Suspect]
     Indication: SPINAL CORD DISORDER
     Dosage: 5400 MG, DAILY
     Dates: start: 2001

REACTIONS (2)
  - Intentional overdose [Unknown]
  - Drug effect incomplete [Unknown]
